FAERS Safety Report 7001751 (Version 8)
Quarter: 2014Q3

REPORT INFORMATION
  Report Type: Report from Study
  Country: JP (occurrence: JP)
  Receive Date: 20090526
  Receipt Date: 20140819
  Transmission Date: 20150326
  Serious: Yes (Other)
  Sender: FDA-Public Use
  Company Number: PHHY2009JP19519

PATIENT
  Age: 41 Year
  Sex: Female

DRUGS (10)
  1. ISODINE [Concomitant]
     Active Substance: POVIDONE-IODINE
     Dosage: UNK UKN, UNK
     Route: 048
     Dates: start: 20090601, end: 20090605
  2. PHOSPHATE [Concomitant]
     Active Substance: UNSPECIFIED INGREDIENT
     Indication: PROPHYLAXIS
     Dosage: UNK UKN, UNK
     Route: 048
     Dates: start: 20090223, end: 20110210
  3. AMN107 [Suspect]
     Active Substance: NILOTINIB
     Dosage: 800 MG, PER DAY
     Route: 048
     Dates: start: 20090609
  4. DRUG THERAPY NOS [Concomitant]
     Active Substance: UNSPECIFIED INGREDIENT
     Indication: PROPHYLAXIS
     Dosage: 2 G, UNK
     Route: 048
     Dates: start: 20090223
  5. MUCOSTA [Concomitant]
     Active Substance: REBAMIPIDE
     Dosage: 200 MG, UNK
     Route: 048
     Dates: start: 20090429, end: 20090522
  6. LASIX [Concomitant]
     Active Substance: FUROSEMIDE
     Indication: OEDEMA
     Dosage: 20 MG, UNK
     Route: 048
     Dates: start: 20090126, end: 20090824
  7. RESPLEN [Concomitant]
     Active Substance: EPRAZINONE
     Dosage: 60 MG, UNK
     Route: 048
     Dates: start: 20090601, end: 20090605
  8. AMN107 [Suspect]
     Active Substance: NILOTINIB
     Indication: CHRONIC MYELOID LEUKAEMIA
     Dosage: 800 MG, PER DAY
     Route: 048
     Dates: start: 20090428, end: 20090515
  9. AMN107 [Suspect]
     Active Substance: NILOTINIB
     Dosage: 800 MG, PER DAY
     Route: 048
     Dates: start: 20090522, end: 20090601
  10. RED BLOOD CELLS, CONCENTRATED [Concomitant]
     Active Substance: HUMAN RED BLOOD CELL
     Dosage: UNK UKN, UNK
     Dates: start: 20090501

REACTIONS (11)
  - Pyrexia [Recovered/Resolved]
  - Blood phosphorus decreased [Recovered/Resolved]
  - Blood bilirubin increased [Not Recovered/Not Resolved]
  - Eosinophil count increased [Recovered/Resolved]
  - Anaemia [Recovered/Resolved]
  - Nasopharyngitis [Recovered/Resolved]
  - Influenza like illness [Unknown]
  - Blood alkaline phosphatase increased [Recovered/Resolved]
  - Rash erythematous [Recovered/Resolved]
  - Electrocardiogram QT prolonged [Recovered/Resolved]
  - Gamma-glutamyltransferase increased [Not Recovered/Not Resolved]

NARRATIVE: CASE EVENT DATE: 20090429
